FAERS Safety Report 4945392-X (Version None)
Quarter: 2006Q1

REPORT INFORMATION
  Report Type: 
  Country: None (occurrence: None)
  Receive Date: 20060315
  Receipt Date: 20060315
  Transmission Date: 20060701
  Serious: Yes (Hospitalization)
  Sender: FDA-Public Use
  Company Number: None

PATIENT
  Age: 47 Year
  Sex: Male
  Weight: 101.6057 kg

DRUGS (2)
  1. NPH INSULIN [Suspect]
     Indication: DIABETES MELLITUS
     Dosage: 24 U QAM  , 14 U QPM
  2. REGULAR INSULIN [Concomitant]

REACTIONS (3)
  - HYPOGLYCAEMIA [None]
  - ILL-DEFINED DISORDER [None]
  - TREATMENT NONCOMPLIANCE [None]
